FAERS Safety Report 9105865 (Version 2)
Quarter: 2013Q1

REPORT INFORMATION
  Report Type: Spontaneous
  Country: US (occurrence: US)
  Receive Date: 20130220
  Receipt Date: 20130311
  Transmission Date: 20140127
  Serious: Yes (Other)
  Sender: FDA-Public Use
  Company Number: US-PFIZER INC-2013059882

PATIENT
  Age: 83 Year
  Sex: Female

DRUGS (4)
  1. ZITHROMAX [Suspect]
     Indication: PNEUMONIA
     Dosage: UNK; FOR 5 DAYS
     Dates: start: 201301, end: 201302
  2. LANTUS [Interacting]
     Dosage: 13 U, QHS
     Dates: end: 20130202
  3. LANTUS [Interacting]
     Dosage: 2 U, UNK
     Dates: start: 20130203, end: 201302
  4. LANTUS [Interacting]
     Dosage: 6 U, NIGHTLY
     Dates: start: 201302

REACTIONS (4)
  - Blood glucose decreased [Recovered/Resolved]
  - Drug interaction [Unknown]
  - Brain injury [Unknown]
  - Hypoglycaemia [Recovered/Resolved]
